FAERS Safety Report 22120866 (Version 2)
Quarter: 2023Q2

REPORT INFORMATION
  Report Type: Spontaneous
  Country: GB (occurrence: GB)
  Receive Date: 20230321
  Receipt Date: 20230603
  Transmission Date: 20230722
  Serious: Yes (Other)
  Sender: FDA-Public Use
  Company Number: GB-MHRA-MED-202303091431568690-PQFCV

PATIENT
  Sex: Female

DRUGS (3)
  1. DOXYCYCLINE [Suspect]
     Active Substance: DOXYCYCLINE
     Indication: Sinusitis
     Dosage: 200 MILLIGRAM DAILY;
     Route: 048
     Dates: start: 20230220
  2. LEVOTHYROXINE [Concomitant]
     Active Substance: LEVOTHYROXINE
     Indication: Hypothyroidism
  3. LIOTHYRONINE [Concomitant]
     Active Substance: LIOTHYRONINE
     Indication: Hypothyroidism

REACTIONS (5)
  - Chest pain [Recovered/Resolved]
  - Chest discomfort [Unknown]
  - Feeding disorder [Unknown]
  - Burning sensation [Unknown]
  - Dry throat [Unknown]

NARRATIVE: CASE EVENT DATE: 20230220
